FAERS Safety Report 20150959 (Version 1)
Quarter: 2021Q4

REPORT INFORMATION
  Report Type: Spontaneous
  Country: FR (occurrence: FR)
  Receive Date: 20211206
  Receipt Date: 20211206
  Transmission Date: 20220303
  Serious: Yes (Other)
  Sender: FDA-Public Use
  Company Number: None

PATIENT
  Age: 29 Year
  Sex: Male

DRUGS (1)
  1. FINASTERIDE [Suspect]
     Active Substance: FINASTERIDE
     Indication: Androgenetic alopecia
     Dosage: 2.5 MILLIGRAM, QW, 0.5 MG 5 X /SEMAINE
     Route: 048
     Dates: start: 20201123, end: 20210607

REACTIONS (3)
  - Erectile dysfunction [Recovered/Resolved]
  - Affective disorder [Recovered/Resolved]
  - Ejaculation disorder [Recovered/Resolved]

NARRATIVE: CASE EVENT DATE: 20201207
